FAERS Safety Report 10367432 (Version 1)
Quarter: 2014Q1

REPORT INFORMATION
  Report Type: Spontaneous
  Country: US (occurrence: None)
  Receive Date: 20140306
  Receipt Date: 20140306
  Transmission Date: 20141002
  Serious: Yes (Other)
  Sender: FDA-Public Use
  Company Number: 163-21880-13071638

PATIENT
  Age: 64 Year
  Sex: Female

DRUGS (12)
  1. REVLIMID (LENALIDOMIDE) (10 MILLIGRAM, CAPSULES) [Suspect]
     Indication: ILL-DEFINED DISORDER
     Route: 048
     Dates: start: 201304
  2. REVLIMID (LENALIDOMIDE) (10 MILLIGRAM, CAPSULES) [Suspect]
     Indication: PLASMA CELL MYELOMA
     Route: 048
     Dates: start: 201304
  3. KLONOPIN (CLONAZEPAM) (UNKNOWN) [Concomitant]
  4. PREDNISONE (UNKNOWN) [Concomitant]
  5. LAMICTAL (LAMOTRIGINE) (UNKNOWN) [Concomitant]
  6. TRILEPTAL (OXCARBAZEPINE) (UNKNOWN) [Concomitant]
  7. ZOMETA (ZOLEDRONIC ACID) (UNKNOWN) [Concomitant]
  8. ATORVASTATIN CALCIUM (UNKNOWN) [Concomitant]
  9. VELCADE (BORTEZOMIB) (UNKNOWN) [Concomitant]
  10. ASPIRIN EC (ACETYLSALICYLIC ACID) (UNKNOWN) [Concomitant]
  11. DIOVAN (VALSARTAN) (UNKNOWN) [Concomitant]
  12. D2000 ULTRA STRENGTH (OTHER THERAPEUTIC PRODUCTS) (UNKNOWN) [Concomitant]

REACTIONS (1)
  - Cerebrovascular accident [None]
